FAERS Safety Report 7957295-7 (Version None)
Quarter: 2011Q4

REPORT INFORMATION
  Report Type: 
  Country: None (occurrence: None)
  Receive Date: 20111205
  Receipt Date: 20111129
  Transmission Date: 20120403
  Serious: Yes (Hospitalization, Other)
  Sender: FDA-Public Use
  Company Number: US-AMGEN-USANI2011051520

PATIENT
  Age: 45 Year
  Sex: Male
  Weight: 74.9 kg

DRUGS (14)
  1. SOLUTIONS FOR PARENTERAL NUTRITION [Concomitant]
  2. RITALIN [Concomitant]
     Dosage: 20 MG, PRN
     Route: 048
  3. VANCOMYCIN [Concomitant]
     Dosage: 1.75 G, UNK
     Route: 042
  4. MEROPENEM [Concomitant]
     Dosage: 500 MG, UNK
     Route: 042
  5. HALDOL [Concomitant]
     Dosage: 2.5 MG, UNK
     Route: 042
  6. CYMBALTA [Concomitant]
     Dosage: 60 MG, UNK
  7. OLANZAPINE [Concomitant]
     Dosage: 10 MG, UNK
     Route: 002
  8. DECITABINE [Concomitant]
     Indication: COLON CANCER METASTATIC
     Dosage: 45 MG/M2, UNK
     Dates: start: 20110729, end: 20111021
  9. TRAZODONE HCL [Concomitant]
     Indication: INSOMNIA
     Dosage: 50 MG, PRN
     Route: 048
  10. ACTIQ [Concomitant]
     Dosage: 600 MUG, UNK
  11. SEROQUEL [Concomitant]
     Dosage: 12.5 MG, UNK
     Route: 048
  12. PANITUMUMAB [Suspect]
     Indication: COLON CANCER METASTATIC
     Dosage: 6 MG/KG, UNK
     Dates: start: 20110805, end: 20111014
  13. AMBIEN [Concomitant]
     Indication: INSOMNIA
     Dosage: 5 MG, PRN
     Route: 048
  14. SENNA-S [Concomitant]
     Dosage: 8.6 MG, BID

REACTIONS (17)
  - URINARY TRACT INFECTION [None]
  - TUMOUR HAEMORRHAGE [None]
  - BACTERAEMIA [None]
  - HYPOCALCAEMIA [None]
  - FALL [None]
  - PYREXIA [None]
  - HYPOKALAEMIA [None]
  - HYPERCALCAEMIA [None]
  - ALANINE AMINOTRANSFERASE ABNORMAL [None]
  - ANAEMIA [None]
  - SYSTEMIC INFLAMMATORY RESPONSE SYNDROME [None]
  - OEDEMA PERIPHERAL [None]
  - ELECTROLYTE IMBALANCE [None]
  - ASPARTATE AMINOTRANSFERASE ABNORMAL [None]
  - CONFUSIONAL STATE [None]
  - DEEP VEIN THROMBOSIS [None]
  - HYPOTENSION [None]
